FAERS Safety Report 16762925 (Version 1)
Quarter: 2019Q3

REPORT INFORMATION
  Report Type: Report from Study
  Country: None (occurrence: BE)
  Receive Date: 20190902
  Receipt Date: 20190902
  Transmission Date: 20191005
  Serious: Yes (Other)
  Sender: FDA-Public Use
  Company Number: BE-ABBVIE-19K-013-2905264-00

PATIENT
  Sex: Female

DRUGS (4)
  1. DUODOPA [Suspect]
     Active Substance: CARBIDOPA\LEVODOPA
     Dosage: DOSES CONTINUOUSLY MONITORED AND ADAPTED
     Route: 050
     Dates: start: 20170622, end: 20190110
  2. DUODOPA [Suspect]
     Active Substance: CARBIDOPA\LEVODOPA
     Dosage: MD=9ML, CD=3.0ML/HR DURING 16HRS, ED=2ML
     Route: 050
     Dates: start: 20190110
  3. XARELTO [Concomitant]
     Active Substance: RIVAROXABAN
     Indication: ANTICOAGULANT THERAPY
  4. DUODOPA [Suspect]
     Active Substance: CARBIDOPA\LEVODOPA
     Indication: PARKINSON^S DISEASE
     Dosage: MD=9ML, CD=3.5ML/HR DURING 16HRS, ED=1.5ML
     Route: 050
     Dates: start: 20161212, end: 20170622

REACTIONS (5)
  - General physical health deterioration [Unknown]
  - Back pain [Unknown]
  - Nephritis [Unknown]
  - Urinary tract infection [Unknown]
  - Pyrexia [Unknown]
